FAERS Safety Report 4488083-4 (Version None)
Quarter: 2004Q4

REPORT INFORMATION
  Report Type: 
  Country: None (occurrence: None)
  Receive Date: 20041028
  Receipt Date: 20041021
  Transmission Date: 20050328
  Serious: Yes (Other)
  Sender: FDA-Public Use
  Company Number: BW-GLAXOSMITHKLINE-B0348837A

PATIENT
  Age: 29 Year
  Sex: Female

DRUGS (3)
  1. LAMIVUDINE [Suspect]
     Indication: HIV INFECTION
     Dates: start: 20040820
  2. STAVUDINE [Suspect]
     Indication: HIV INFECTION
     Dates: start: 20040820
  3. NEVIRAPINE [Suspect]
     Indication: HIV INFECTION
     Dates: start: 20040820

REACTIONS (9)
  - ALANINE AMINOTRANSFERASE INCREASED [None]
  - ASPARTATE AMINOTRANSFERASE INCREASED [None]
  - BLOOD BILIRUBIN INCREASED [None]
  - CHROMATURIA [None]
  - GAMMA-GLUTAMYLTRANSFERASE INCREASED [None]
  - HEPATOTOXICITY [None]
  - NAUSEA [None]
  - OCULAR ICTERUS [None]
  - VOMITING [None]
